FAERS Safety Report 14089319 (Version 4)
Quarter: 2017Q4

REPORT INFORMATION
  Report Type: Report from Study
  Country: BR (occurrence: BR)
  Receive Date: 20171014
  Receipt Date: 20171213
  Transmission Date: 20180321
  Serious: Yes (Other)
  Sender: FDA-Public Use
  Company Number: BR-AMGEN-BRASP2017152731

PATIENT
  Age: 3 Year
  Sex: Female
  Weight: 16.5 kg

DRUGS (34)
  1. CEFEPIME [Concomitant]
     Active Substance: CEFEPIME HYDROCHLORIDE
     Indication: INFECTION
     Dosage: UNK
     Dates: end: 20170610
  2. ESMERON [Concomitant]
     Active Substance: ROCURONIUM BROMIDE
     Dosage: 0.6 MG/KG, UNK
  3. SALINE [Concomitant]
     Active Substance: SODIUM CHLORIDE
     Dosage: 75 ML/HR
  4. CALCIUM [Concomitant]
     Active Substance: CALCIUM
     Dosage: UNK
  5. VALPROIC ACID. [Concomitant]
     Active Substance: VALPROIC ACID
     Dosage: 10 MG/KG, Q12H
  6. HIXIZINE [Concomitant]
     Active Substance: HYDROXYZINE HYDROCHLORIDE
     Dosage: 0.5 MG/KG, UNK
  7. ALBENDAZOLE [Concomitant]
     Active Substance: ALBENDAZOLE
     Indication: INTESTINAL HAEMORRHAGE
  8. ARA-C [Concomitant]
     Active Substance: CYTARABINE
     Dosage: 25 MG, IN 1 HR
     Route: 042
  9. DEPURA [Concomitant]
     Active Substance: CHOLECALCIFEROL
     Dosage: 50000 IU, QWK
     Dates: start: 20170727
  10. MIDAZOLAM [Concomitant]
     Active Substance: MIDAZOLAM HYDROCHLORIDE
     Dosage: UNK
  11. LINEZOLIDE [Concomitant]
     Active Substance: LINEZOLID
     Dosage: 150 MG, Q8H
     Route: 042
     Dates: start: 20171010
  12. METRONIDAZOLE. [Concomitant]
     Active Substance: METRONIDAZOLE
     Dosage: UNK
     Dates: start: 20170929, end: 20171006
  13. ALOPURINOL [Concomitant]
     Active Substance: ALLOPURINOL
     Dosage: 300 MG/M2, Q8H
     Route: 048
     Dates: start: 20170510
  14. PROPOFOL. [Concomitant]
     Active Substance: PROPOFOL
     Dosage: UNK
  15. CYCLOSPORINE. [Concomitant]
     Active Substance: CYCLOSPORINE
     Dosage: UNK
     Dates: end: 2017
  16. TARGOCID [Concomitant]
     Active Substance: TEICOPLANIN
     Indication: INFECTION
     Dosage: UNK
     Dates: end: 20170610
  17. ENTOCORT [Concomitant]
     Active Substance: BUDESONIDE
     Indication: INTESTINAL HAEMORRHAGE
     Dosage: UNK
     Dates: start: 20170929, end: 20171006
  18. FUROSEMIDE. [Concomitant]
     Active Substance: FUROSEMIDE
     Dosage: UNK
  19. ETOPOSIDE. [Concomitant]
     Active Substance: ETOPOSIDE
     Dosage: 25 MG/M2, UNK
     Route: 042
  20. ONDANSETRON [Concomitant]
     Active Substance: ONDANSETRON
     Dosage: 2 MG, Q8H
     Route: 042
  21. MEROPENEM. [Concomitant]
     Active Substance: MEROPENEM
     Dosage: 120 MG/KG, QD
     Dates: start: 20170810
  22. OMEPRAZOLE. [Concomitant]
     Active Substance: OMEPRAZOLE
     Dosage: 20 MG, QD
     Route: 042
  23. IGG [Concomitant]
     Active Substance: HUMAN IMMUNOGLOBULIN G
     Indication: INFECTION
     Dosage: UNK
     Dates: start: 20170724
  24. ENTOCORT [Concomitant]
     Active Substance: BUDESONIDE
     Indication: ABDOMINAL PAIN
  25. BLINATUMOMAB [Suspect]
     Active Substance: BLINATUMOMAB
     Indication: B PRECURSOR TYPE ACUTE LEUKAEMIA
     Dosage: UNK
     Route: 065
     Dates: start: 20170707
  26. CYCLOPHOSPHAMIDE. [Concomitant]
     Active Substance: CYCLOPHOSPHAMIDE
     Dosage: 50 MG/KG, UNK
  27. BACTRIM [Concomitant]
     Active Substance: SULFAMETHOXAZOLE\TRIMETHOPRIM
     Dosage: 5 ML, BID (MONDAY, WEDNESDAY AND FRIDAY)
  28. ALBENDAZOLE [Concomitant]
     Active Substance: ALBENDAZOLE
     Indication: ABDOMINAL PAIN
     Dosage: UNK
     Dates: start: 20170831, end: 20170905
  29. DORMONID [Concomitant]
     Active Substance: MIDAZOLAM MALEATE
     Dosage: 0.25 MG/KG, UNK
  30. NOREPINEPHRINE. [Concomitant]
     Active Substance: NOREPINEPHRINE
     Dosage: 0.1
  31. ALBUMIN [Concomitant]
     Active Substance: ALBUMIN HUMAN
     Dosage: UNK
  32. PHOSPHORUS [Concomitant]
     Active Substance: PHOSPHORUS
     Dosage: UNK
  33. LUFTAL [Concomitant]
     Active Substance: DIMETHICONE
     Dosage: 15 DROPS, Q6H
  34. FENTANYL. [Concomitant]
     Active Substance: FENTANYL

REACTIONS (5)
  - Seizure [Recovering/Resolving]
  - Leukaemia recurrent [Not Recovered/Not Resolved]
  - Leukostasis syndrome [Unknown]
  - Retinal haemorrhage [Unknown]
  - Off label use [Unknown]

NARRATIVE: CASE EVENT DATE: 2017
